FAERS Safety Report 10157963 (Version 2)
Quarter: 2014Q4

REPORT INFORMATION
  Report Type: Spontaneous
  Country: US (occurrence: US)
  Receive Date: 20140507
  Receipt Date: 20141027
  Transmission Date: 20150528
  Serious: Yes (Life-Threatening, Hospitalization, Disabling, Other)
  Sender: FDA-Public Use
  Company Number: US-GLAXOSMITHKLINE-A1072175A

PATIENT
  Age: 57 Year
  Sex: Male
  Weight: 174.6 kg

DRUGS (16)
  1. LAMICTAL [Suspect]
     Active Substance: LAMOTRIGINE
     Indication: SEIZURE
  2. CALCIUM CITRATE [Concomitant]
     Active Substance: CALCIUM CITRATE
  3. WARFARIN [Concomitant]
     Active Substance: WARFARIN
  4. MULTIVITAMIN [Concomitant]
     Active Substance: VITAMINS
  5. LUNESTA [Concomitant]
     Active Substance: ESZOPICLONE
  6. LAMICTAL [Suspect]
     Active Substance: LAMOTRIGINE
     Indication: NERVOUS SYSTEM DISORDER
     Dosage: UNK, BID
     Route: 065
     Dates: start: 20080917
  7. CHEMOTHERAPY [Suspect]
     Active Substance: UNSPECIFIED INGREDIENT
     Indication: OLIGODENDROGLIOMA
     Dosage: UNK
  8. RADIATION [Suspect]
     Active Substance: RADIATION THERAPY
     Indication: OLIGODENDROGLIOMA
     Dosage: UNK, U
  9. ZOFRAN [Concomitant]
     Active Substance: ONDANSETRON HYDROCHLORIDE
  10. LASIX [Concomitant]
     Active Substance: FUROSEMIDE
  11. HYDROCODONE ACETAMINOPHEN [Concomitant]
     Active Substance: ACETAMINOPHEN\HYDROCODONE BITARTRATE
  12. TEMODAR [Suspect]
     Active Substance: TEMOZOLOMIDE
     Indication: OLIGODENDROGLIOMA
     Dosage: UNK, U
     Route: 065
  13. LISINOPRIL. [Concomitant]
     Active Substance: LISINOPRIL
  14. FISH OIL [Concomitant]
     Active Substance: FISH OIL
  15. ULTRAM [Concomitant]
     Active Substance: TRAMADOL HYDROCHLORIDE
  16. HYDROCHLOROTHIAZIDE. [Concomitant]
     Active Substance: HYDROCHLOROTHIAZIDE

REACTIONS (19)
  - Malignant neoplasm progression [Recovering/Resolving]
  - Cognitive disorder [Recovering/Resolving]
  - Headache [Unknown]
  - Visual impairment [Unknown]
  - Tearfulness [Unknown]
  - Depressed mood [Unknown]
  - Acalculia [Unknown]
  - Agraphia [Unknown]
  - Post-traumatic stress disorder [Unknown]
  - Impaired driving ability [Unknown]
  - Gait disturbance [Unknown]
  - Fall [Unknown]
  - Memory impairment [Recovering/Resolving]
  - Craniotomy [Unknown]
  - Aphasia [Recovering/Resolving]
  - Dementia [Unknown]
  - Sinusitis [Unknown]
  - Tremor [Unknown]
  - Ataxia [Unknown]

NARRATIVE: CASE EVENT DATE: 2010
